FAERS Safety Report 7610592-7 (Version None)
Quarter: 2011Q3

REPORT INFORMATION
  Report Type: 
  Country: None (occurrence: None)
  Receive Date: 20110715
  Receipt Date: 20110707
  Transmission Date: 20111222
  Serious: Yes (Other)
  Sender: FDA-Public Use
  Company Number: US-US-EMD SERONO, INC.-7064421

PATIENT
  Sex: Female
  Weight: 71 kg

DRUGS (3)
  1. ATENOLOL [Concomitant]
     Indication: BLOOD PRESSURE
  2. SIMVASTATIN [Concomitant]
     Indication: BLOOD CHOLESTEROL
  3. REBIF [Suspect]
     Indication: MULTIPLE SCLEROSIS
     Route: 058
     Dates: start: 20040126

REACTIONS (1)
  - DIABETES MELLITUS [None]
